FAERS Safety Report 14911442 (Version 2)
Quarter: 2018Q2

REPORT INFORMATION
  Report Type: Report from Study
  Country: None (occurrence: US)
  Receive Date: 20180518
  Receipt Date: 20180606
  Transmission Date: 20180711
  Serious: Yes (Other)
  Sender: FDA-Public Use
  Company Number: US-ABBVIE-18K-163-2354868-00

PATIENT
  Age: 66 Year
  Sex: Female

DRUGS (1)
  1. HUMIRA [Suspect]
     Active Substance: ADALIMUMAB
     Indication: CROHN^S DISEASE
     Route: 058
     Dates: start: 2009

REACTIONS (15)
  - Vulvovaginal pruritus [Not Recovered/Not Resolved]
  - Skin fissures [Not Recovered/Not Resolved]
  - Rash [Recovered/Resolved]
  - Bladder disorder [Unknown]
  - Medical device site injury [Unknown]
  - Gastrointestinal haemorrhage [Unknown]
  - Cataract [Recovered/Resolved]
  - Drug level decreased [Unknown]
  - Drug effect decreased [Not Recovered/Not Resolved]
  - Rash [Not Recovered/Not Resolved]
  - Arteriosclerosis coronary artery [Unknown]
  - Crohn^s disease [Unknown]
  - Blood pressure increased [Unknown]
  - Vocal cord paralysis [Not Recovered/Not Resolved]
  - Lung disorder [Not Recovered/Not Resolved]

NARRATIVE: CASE EVENT DATE: 2013
